FAERS Safety Report 7201571-2 (Version None)
Quarter: 2010Q4

REPORT INFORMATION
  Report Type: 
  Country: None (occurrence: None)
  Receive Date: 20101216
  Receipt Date: 20101201
  Transmission Date: 20110411
  Serious: Yes (Life-Threatening, Hospitalization)
  Sender: FDA-Public Use
  Company Number: CIP10002827

PATIENT
  Age: 73 Year
  Sex: Female

DRUGS (5)
  1. RISEDRONATE SODIUM [Suspect]
     Indication: OSTEOPOROSIS
     Dosage: 17.5 WEEKLY ON SUNDAYS, ORAL
     Route: 048
     Dates: end: 20101017
  2. LOXONIN /00890702/ (LOXOPROFEN SODIUM) [Suspect]
     Dosage: ORAL
     Route: 048
  3. OTHER COLD COMBINATION PREPARATIONS () [Suspect]
     Dosage: 1 G, ONE TIME ONLY, ORAL
     Route: 048
  4. ADENOSINE TRIPHOSPHATE,DISODIUM SALT (ADENOSINE TRIPHOSPHATE,DISODIUM [Suspect]
     Dosage: ORAL
     Route: 048
  5. CLARITHROMYCIN [Concomitant]

REACTIONS (9)
  - ABDOMINAL PAIN [None]
  - ABDOMINAL PAIN UPPER [None]
  - ALANINE AMINOTRANSFERASE INCREASED [None]
  - HEADACHE [None]
  - HEPATIC FUNCTION ABNORMAL [None]
  - LIVER DISORDER [None]
  - LIVER INJURY [None]
  - NAUSEA [None]
  - PAIN [None]
